FAERS Safety Report 15579546 (Version 10)
Quarter: 2020Q1

REPORT INFORMATION
  Report Type: Spontaneous
  Country: US (occurrence: US)
  Receive Date: 20181102
  Receipt Date: 20200327
  Transmission Date: 20200409
  Serious: Yes (Life-Threatening, Hospitalization, Other)
  Sender: FDA-Public Use
  Company Number: US-VERTEX PHARMACEUTICALS-2018-007913

PATIENT
  Age: 66 Year
  Sex: Male
  Weight: 126 kg

DRUGS (29)
  1. TOUJEO [Concomitant]
     Active Substance: INSULIN GLARGINE
     Dosage: 300 U/ML
     Dates: start: 20181001
  2. CARVEDILOL. [Concomitant]
     Active Substance: CARVEDILOL
     Dosage: 6.25 MG
     Dates: start: 20180730
  3. METFORMIN [Concomitant]
     Active Substance: METFORMIN HYDROCHLORIDE
     Dosage: 500 MG
     Dates: start: 20180810
  4. XIGDUO XR [Concomitant]
     Active Substance: DAPAGLIFLOZIN PROPANEDIOL\METFORMIN HYDROCHLORIDE
     Dosage: 5/1000 MG
     Dates: start: 20180328
  5. CEFPODOXIME [Concomitant]
     Active Substance: CEFPODOXIME
     Dosage: 200 MG
     Dates: start: 20161018
  6. LISINOPRIL. [Concomitant]
     Active Substance: LISINOPRIL
     Dosage: 5  MG
     Dates: start: 20180809
  7. LEVALBUTEROL                       /01419301/ [Concomitant]
     Active Substance: LEVALBUTEROL
     Dosage: UNK
     Dates: start: 20180618
  8. LEVALBUTEROL                       /01419301/ [Concomitant]
     Active Substance: LEVALBUTEROL
     Dosage: UNK
     Dates: start: 20180822
  9. DIGOX [Concomitant]
     Active Substance: DIGOXIN
     Dosage: .25 MG
     Dates: start: 20180823
  10. TAMSULOSIN [Concomitant]
     Active Substance: TAMSULOSIN
  11. DIGOX [Concomitant]
     Active Substance: DIGOXIN
     Dosage: .25 MG
     Dates: start: 20170901
  12. HUMALOG [Concomitant]
     Active Substance: INSULIN LISPRO
     Dosage: 100 MILLILITER
     Dates: start: 20180930
  13. LISINOPRIL. [Concomitant]
     Active Substance: LISINOPRIL
     Dosage: 5 MG
     Dates: start: 20170823
  14. LISINOPRIL. [Concomitant]
     Active Substance: LISINOPRIL
     Dosage: 5 MG
     Dates: start: 20180802
  15. LEVALBUTEROL                       /01419301/ [Concomitant]
     Active Substance: LEVALBUTEROL
     Dosage: UNK
     Dates: start: 20180823
  16. LINEZOLID. [Concomitant]
     Active Substance: LINEZOLID
  17. KALYDECO [Suspect]
     Active Substance: IVACAFTOR
     Indication: CYSTIC FIBROSIS
     Dosage: 150 MG, BID
     Route: 048
     Dates: start: 20170901, end: 20191224
  18. COUMADIN [Concomitant]
     Active Substance: WARFARIN SODIUM
     Indication: ATRIAL FIBRILLATION
     Dosage: 8 MG, QD
     Dates: start: 2013, end: 20181026
  19. TOUJEO [Concomitant]
     Active Substance: INSULIN GLARGINE
     Dosage: 300 U/ML
     Dates: start: 20180214
  20. ENOXAPARIN [Concomitant]
     Active Substance: ENOXAPARIN
  21. DIGOX [Concomitant]
     Active Substance: DIGOXIN
     Dosage: .25  MG
     Dates: start: 20180822
  22. CARVEDILOL. [Concomitant]
     Active Substance: CARVEDILOL
     Dosage: 6.25 MG
     Dates: start: 20180729
  23. LEVOFLOXACIN. [Concomitant]
     Active Substance: LEVOFLOXACIN
  24. PULMOZYME [Concomitant]
     Active Substance: DORNASE ALFA
  25. LOVENOX [Suspect]
     Active Substance: ENOXAPARIN SODIUM
     Indication: PRODUCT USED FOR UNKNOWN INDICATION
     Dosage: 120 MG, BID
     Route: 058
     Dates: start: 20181027, end: 20181028
  26. WARFARIN [Concomitant]
     Active Substance: WARFARIN
     Dosage: 10 MG
     Dates: start: 20171108
  27. POTASSIUM CITRATE. [Concomitant]
     Active Substance: POTASSIUM CITRATE
  28. OXYBUTYNIN. [Concomitant]
     Active Substance: OXYBUTYNIN CHLORIDE
  29. INSULIN [Concomitant]
     Active Substance: INSULIN NOS

REACTIONS (12)
  - Pneumonia [Unknown]
  - Nephrolithiasis [Not Recovered/Not Resolved]
  - Heart rate increased [Unknown]
  - Dysuria [Unknown]
  - Sepsis [Unknown]
  - Microalbuminuria [Unknown]
  - ECG signs of myocardial ischaemia [Unknown]
  - Ear infection [Not Recovered/Not Resolved]
  - Haematuria [Not Recovered/Not Resolved]
  - Gastrooesophageal reflux disease [Unknown]
  - Shock [Unknown]
  - Surgery [Unknown]

NARRATIVE: CASE EVENT DATE: 2018
